FAERS Safety Report 8461426-2 (Version None)
Quarter: 2012Q2

REPORT INFORMATION
  Report Type: 
  Country: None (occurrence: None)
  Receive Date: 20120323
  Receipt Date: 20111103
  Transmission Date: 20120825
  Serious: Yes (Hospitalization, Other)
  Sender: FDA-Public Use
  Company Number: 163-21880-11102223

PATIENT
  Age: 58 Year
  Sex: Male

DRUGS (8)
  1. REVLIMID [Suspect]
     Indication: ANAEMIA
     Dosage: 15 MG, DAILY X 21 DAYS, PO ; 15 M, DAILY X 21 DAYS, PO ; 10 MG, 1 IN 1 D, PO
     Route: 048
     Dates: start: 20110914
  2. REVLIMID [Suspect]
     Indication: MULTIPLE MYELOMA
     Dosage: 15 MG, DAILY X 21 DAYS, PO ; 15 M, DAILY X 21 DAYS, PO ; 10 MG, 1 IN 1 D, PO
     Route: 048
     Dates: start: 20110914
  3. REVLIMID [Suspect]
     Indication: ANAEMIA
     Dosage: 15 MG, DAILY X 21 DAYS, PO ; 15 M, DAILY X 21 DAYS, PO ; 10 MG, 1 IN 1 D, PO
     Route: 048
     Dates: start: 20111101
  4. REVLIMID [Suspect]
     Indication: MULTIPLE MYELOMA
     Dosage: 15 MG, DAILY X 21 DAYS, PO ; 15 M, DAILY X 21 DAYS, PO ; 10 MG, 1 IN 1 D, PO
     Route: 048
     Dates: start: 20111101
  5. REVLIMID [Suspect]
     Indication: ANAEMIA
     Dosage: 15 MG, DAILY X 21 DAYS, PO ; 15 M, DAILY X 21 DAYS, PO ; 10 MG, 1 IN 1 D, PO
     Route: 048
     Dates: start: 20080109, end: 20091223
  6. REVLIMID [Suspect]
     Indication: MULTIPLE MYELOMA
     Dosage: 15 MG, DAILY X 21 DAYS, PO ; 15 M, DAILY X 21 DAYS, PO ; 10 MG, 1 IN 1 D, PO
     Route: 048
     Dates: start: 20080109, end: 20091223
  7. THALIDOMIDE [Suspect]
     Indication: ANAEMIA
     Dosage: 100 MG, DAILLY X 28 DAYS, PO ; 100 MG, PO
     Route: 048
     Dates: start: 20110701
  8. THALIDOMIDE [Suspect]
     Indication: ANAEMIA
     Dosage: 100 MG, DAILLY X 28 DAYS, PO ; 100 MG, PO
     Route: 048
     Dates: start: 20110307

REACTIONS (3)
  - WHITE BLOOD CELL COUNT DECREASED [None]
  - SEPSIS [None]
  - PLATELET COUNT DECREASED [None]
